FAERS Safety Report 13517313 (Version 1)
Quarter: 2017Q2

REPORT INFORMATION
  Report Type: Report from Study
  Country: HU (occurrence: HU)
  Receive Date: 20170505
  Receipt Date: 20170505
  Transmission Date: 20170830
  Serious: Yes (Hospitalization)
  Sender: FDA-Public Use
  Company Number: HU-TEVA-766128ISR

PATIENT
  Age: 33 Year
  Sex: Female
  Weight: 55 kg

DRUGS (5)
  1. COPAXONE [Suspect]
     Active Substance: GLATIRAMER ACETATE
     Indication: MULTIPLE SCLEROSIS
     Dates: start: 20161213, end: 20170426
  2. NOOTROPIL [Concomitant]
     Active Substance: PIRACETAM
     Dosage: 2400 MILLIGRAM DAILY; IN THE MORNING AND AT MIDDAY
     Dates: start: 20020131
  3. LEVETIRACETAM. [Concomitant]
     Active Substance: LEVETIRACETAM
     Dosage: 1000 MILLIGRAM DAILY; 500 MG IN THE MORNING AND IN THE EVENING
     Dates: start: 20050421
  4. ETOPRO [Concomitant]
     Dosage: 100 MILLIGRAM DAILY;
     Dates: start: 20050127
  5. BETAGEN [Concomitant]
     Active Substance: BETAMETHASONE
     Dosage: 2 DOSAGE FORMS DAILY; DOSE IN THE MORNING AND AT MIDDAY
     Dates: start: 20020131

REACTIONS (13)
  - Lip swelling [Recovering/Resolving]
  - Hypotension [Recovering/Resolving]
  - Heart rate decreased [Recovering/Resolving]
  - Burning sensation [Recovering/Resolving]
  - Diarrhoea [Recovering/Resolving]
  - Dyspnoea [Recovering/Resolving]
  - Swelling face [Recovering/Resolving]
  - Erythema [Recovering/Resolving]
  - Sensation of foreign body [Recovering/Resolving]
  - Eyelid oedema [Recovering/Resolving]
  - Hyperhidrosis [Recovering/Resolving]
  - Tremor [Recovering/Resolving]
  - Hypersensitivity [Recovering/Resolving]

NARRATIVE: CASE EVENT DATE: 20170426
